FAERS Safety Report 23011912 (Version 2)
Quarter: 2023Q4

REPORT INFORMATION
  Report Type: Report from Study
  Country: US (occurrence: None)
  Receive Date: 20230929
  Receipt Date: 20231114
  Transmission Date: 20240109
  Serious: Yes (Hospitalization)
  Sender: FDA-Public Use
  Company Number: US-ROCHE-3428643

PATIENT
  Age: 14 Year
  Sex: Female
  Weight: 41.6 kg

DRUGS (1)
  1. TOCILIZUMAB [Suspect]
     Active Substance: TOCILIZUMAB
     Indication: Craniopharyngioma
     Dosage: STRENGTH: 2000 MG/ML
     Route: 042
     Dates: start: 20230327

REACTIONS (1)
  - Ear pain [Recovered/Resolved]

NARRATIVE: CASE EVENT DATE: 20230919
